FAERS Safety Report 6830168-9 (Version None)
Quarter: 2010Q3

REPORT INFORMATION
  Report Type: 
  Country: None (occurrence: None)
  Receive Date: 20100711
  Receipt Date: 20100526
  Transmission Date: 20110219
  Serious: No
  Sender: FDA-Public Use
  Company Number: US-ALLERGAN-1006958US

PATIENT
  Age: 56 Year
  Sex: Female

DRUGS (3)
  1. LATISSE [Suspect]
     Indication: GROWTH OF EYELASHES
     Dosage: 1 GTT, QHS
     Route: 061
  2. THYROID TAB [Concomitant]
     Indication: HYPOTHYROIDISM
     Dosage: UNK
  3. VITAMINS [Concomitant]

REACTIONS (6)
  - EYE PRURITUS [None]
  - EYELID IRRITATION [None]
  - EYELID OEDEMA [None]
  - HEADACHE [None]
  - LACRIMATION INCREASED [None]
  - SKIN HYPERPIGMENTATION [None]
